FAERS Safety Report 11639558 (Version 1)
Quarter: 2015Q4

REPORT INFORMATION
  Report Type: Spontaneous
  Country: US (occurrence: US)
  Receive Date: 20151019
  Receipt Date: 20151019
  Transmission Date: 20160304
  Serious: Yes (Other)
  Sender: FDA-Public Use
  Company Number: PHEH2015US005732

PATIENT
  Age: 71 Year
  Sex: Female
  Weight: 42 kg

DRUGS (1)
  1. ZOLEDRONIC ACID [Suspect]
     Active Substance: ZOLEDRONIC ACID
     Indication: PLASMA CELL MYELOMA
     Dosage: 3 MG, EVERY 28 DAYS
     Route: 042
     Dates: start: 20131119, end: 20141014

REACTIONS (4)
  - Acute kidney injury [Not Recovered/Not Resolved]
  - Metabolic acidosis [Unknown]
  - White blood cell count decreased [Unknown]
  - Blood creatinine increased [Unknown]

NARRATIVE: CASE EVENT DATE: 20140212
